FAERS Safety Report 6211320-2 (Version None)
Quarter: 2009Q2

REPORT INFORMATION
  Report Type: 
  Country: None (occurrence: None)
  Receive Date: 20090602
  Receipt Date: 20090522
  Transmission Date: 20091009
  Serious: Yes (Death)
  Sender: FDA-Public Use
  Company Number: US-BRISTOL-MYERS SQUIBB COMPANY-14596266

PATIENT
  Age: 51 Year
  Sex: Female
  Weight: 70 kg

DRUGS (13)
  1. CETUXIMAB [Suspect]
     Indication: NON-SMALL CELL LUNG CANCER METASTATIC
     Route: 042
     Dates: start: 20090217, end: 20090331
  2. PEMETREXED DISODIUM [Suspect]
     Indication: NON-SMALL CELL LUNG CANCER METASTATIC
     Route: 042
     Dates: start: 20090217, end: 20090331
  3. VERAPAMIL [Concomitant]
     Indication: HYPERTENSION
     Route: 048
     Dates: start: 19890101
  4. CYMBALTA [Concomitant]
     Indication: DEPRESSION
     Route: 048
     Dates: start: 20070101
  5. NEURONTIN [Concomitant]
     Indication: PERIPHERAL SENSORY NEUROPATHY
     Route: 048
     Dates: start: 20080101
  6. FOLIC ACID [Concomitant]
     Indication: PREMEDICATION
     Route: 048
     Dates: start: 20090212
  7. VITAMIN B-12 [Concomitant]
     Indication: PREMEDICATION
     Route: 030
     Dates: start: 20090212
  8. LOVASTATIN [Concomitant]
     Indication: HYPERCHOLESTEROLAEMIA
     Route: 048
     Dates: start: 19970101
  9. ASPIRIN [Concomitant]
     Indication: PROPHYLAXIS
     Route: 048
     Dates: start: 19970101
  10. PROPRANOLOL HYDROCHLORIDE [Concomitant]
     Indication: HYPERTENSION
     Dosage: PROPRANOLOL SR
     Route: 048
     Dates: start: 19890101
  11. NEULASTA [Concomitant]
     Indication: PROPHYLAXIS
     Route: 058
     Dates: start: 20090331
  12. MYLANTA [Concomitant]
     Indication: DYSPEPSIA
     Route: 048
     Dates: start: 20090310
  13. PEPCID [Concomitant]
     Indication: DYSPEPSIA
     Dosage: HS
     Route: 048
     Dates: start: 20090225

REACTIONS (1)
  - SEPSIS [None]
